FAERS Safety Report 9223057 (Version 2)
Quarter: 2013Q2

REPORT INFORMATION
  Report Type: Report from Study
  Country: US (occurrence: US)
  Receive Date: 20130410
  Receipt Date: 20130415
  Transmission Date: 20140414
  Serious: Yes (Death)
  Sender: FDA-Public Use
  Company Number: US-ROCHE-1212350

PATIENT
  Age: 57 Year
  Sex: Male
  Weight: 64.01 kg

DRUGS (6)
  1. PEGASYS [Suspect]
     Indication: HEPATITIS C
     Route: 058
     Dates: start: 20120329, end: 20130228
  2. RIBAVIRIN [Suspect]
     Indication: HEPATITIS C
     Route: 048
     Dates: start: 20120329, end: 20130228
  3. FAMOTIDINE [Concomitant]
     Indication: GASTROOESOPHAGEAL REFLUX DISEASE
     Route: 048
  4. MAGNESIUM [Concomitant]
     Indication: MUSCLE SPASMS
     Route: 048
  5. SERTRALINE [Concomitant]
     Indication: DEPRESSION
     Route: 048
  6. TRAMADOL [Concomitant]
     Indication: PAIN
     Dosage: AS REQUIRED
     Route: 048

REACTIONS (3)
  - Pneumonia [Fatal]
  - Chronic obstructive pulmonary disease [Fatal]
  - Acute respiratory failure [Fatal]
